FAERS Safety Report 5612840-1 (Version None)
Quarter: 2008Q1

REPORT INFORMATION
  Report Type: 
  Country: None (occurrence: None)
  Receive Date: 20080128
  Receipt Date: 20070910
  Transmission Date: 20080703
  Serious: Yes (Hospitalization)
  Sender: FDA-Public Use
  Company Number: T08-USA-00212-01

PATIENT

DRUGS (2)
  1. CERVIDIL [Suspect]
     Indication: LABOUR INDUCTION
     Dosage: 10 MG ONCE TRANSPLACENTAL
     Route: 064
     Dates: start: 20060905, end: 20060906
  2. CERVIDIL [Suspect]
     Indication: LABOUR STIMULATION
     Dosage: 10 MG ONCE TRANSPLACENTAL
     Route: 064
     Dates: start: 20060905, end: 20060906

REACTIONS (4)
  - DRUG EXPOSURE DURING PREGNANCY [None]
  - HYPERBILIRUBINAEMIA NEONATAL [None]
  - NEONATAL ASPIRATION [None]
  - NEONATAL RESPIRATORY DISTRESS SYNDROME [None]
